FAERS Safety Report 5641038-6 (Version None)
Quarter: 2008Q1

REPORT INFORMATION
  Report Type: 
  Country: None (occurrence: None)
  Receive Date: 20080225
  Receipt Date: 20080214
  Transmission Date: 20080703
  Serious: Yes (Hospitalization)
  Sender: FDA-Public Use
  Company Number: GXKR2008GB01702

PATIENT
  Age: 65 Year
  Sex: Male

DRUGS (2)
  1. ALLOPURINOL [Suspect]
     Dosage: ORAL
     Route: 048
     Dates: start: 20071111, end: 20080111
  2. CO-TRIMOXAZOLE(CO-TRIMOXAZOLE) [Suspect]
     Dosage: 3 WEEKS, ORAL
     Route: 048
     Dates: start: 20080104, end: 20080111

REACTIONS (1)
  - HEPATITIS [None]
